FAERS Safety Report 24979655 (Version 1)
Quarter: 2025Q1

REPORT INFORMATION
  Report Type: Spontaneous
  Country: US (occurrence: US)
  Receive Date: 20250218
  Receipt Date: 20250218
  Transmission Date: 20250409
  Serious: Yes (Hospitalization, Other)
  Sender: RANBAXY
  Company Number: US-SUN PHARMACEUTICAL INDUSTRIES LTD-2025R1-493798

PATIENT
  Age: 63 Year
  Sex: Female

DRUGS (4)
  1. OCTREOTIDE [Suspect]
     Active Substance: OCTREOTIDE
     Indication: Encephalopathy
     Route: 042
  2. SILIBININ [Suspect]
     Active Substance: SILIBININ
     Indication: Encephalopathy
     Route: 042
  3. PENICILLIN [Suspect]
     Active Substance: PENICILLIN
     Indication: Encephalopathy
     Route: 065
  4. ACETYLCYSTEINE [Suspect]
     Active Substance: ACETYLCYSTEINE
     Indication: Encephalopathy
     Route: 042

REACTIONS (2)
  - Condition aggravated [Unknown]
  - Acute kidney injury [Unknown]
